FAERS Safety Report 17537120 (Version 1)
Quarter: 2020Q1

REPORT INFORMATION
  Report Type: Spontaneous
  Country: GR (occurrence: GR)
  Receive Date: 20200313
  Receipt Date: 20200313
  Transmission Date: 20200409
  Serious: Yes (Death, Other)
  Sender: FDA-Public Use
  Company Number: GR-TEVA-2020-GR-1200000

PATIENT
  Age: 67 Year
  Sex: Female

DRUGS (2)
  1. OLARATUMAB [Suspect]
     Active Substance: OLARATUMAB
     Route: 065
  2. DOXORUBICIN [Suspect]
     Active Substance: DOXORUBICIN
     Indication: BREAST SARCOMA
     Route: 065

REACTIONS (3)
  - Neoplasm recurrence [Fatal]
  - Metastases to lung [Fatal]
  - Respiratory failure [Fatal]
